FAERS Safety Report 10194701 (Version 2)
Quarter: 2014Q2

REPORT INFORMATION
  Report Type: Spontaneous
  Country: US (occurrence: US)
  Receive Date: 20140526
  Receipt Date: 20140623
  Transmission Date: 20141212
  Serious: No
  Sender: FDA-Public Use
  Company Number: US-ASTRAZENECA-2014SE33212

PATIENT
  Age: 58 Year
  Sex: Male

DRUGS (1)
  1. SYMBICORT [Suspect]
     Indication: CHRONIC OBSTRUCTIVE PULMONARY DISEASE
     Dosage: 160/4.5 MCG, 2 PUFFS, TWO TIMES A DAY
     Route: 055
     Dates: start: 2010, end: 20140509

REACTIONS (5)
  - Condition aggravated [Unknown]
  - Pulmonary congestion [Unknown]
  - Bronchitis [Unknown]
  - Drug dose omission [Unknown]
  - Drug ineffective [Unknown]
